FAERS Safety Report 4919002-1 (Version None)
Quarter: 2006Q1

REPORT INFORMATION
  Report Type: 
  Country: None (occurrence: None)
  Receive Date: 20060216
  Receipt Date: 20060125
  Transmission Date: 20060701
  Serious: Yes (Other)
  Sender: FDA-Public Use
  Company Number: US_0509122369

PATIENT
  Age: 45 Year
  Sex: Female
  Weight: 144.2 kg

DRUGS (8)
  1. ZYPREXA [Suspect]
     Indication: BIPOLAR DISORDER
     Dosage: 20 MG, ORAL
     Route: 048
     Dates: start: 19990101, end: 20051201
  2. CELEXA [Concomitant]
  3. PREVACID [Concomitant]
  4. IBUPROFEN [Concomitant]
  5. TROSPIUM CHLORIDE (TROSPIUM CHLORIDE) [Concomitant]
  6. LISINOPRIL [Concomitant]
  7. INDERAL [Concomitant]
  8. ALTACE [Concomitant]

REACTIONS (10)
  - BACK PAIN [None]
  - CAESAREAN SECTION [None]
  - DIABETES MELLITUS INADEQUATE CONTROL [None]
  - DRUG EXPOSURE DURING PREGNANCY [None]
  - GASTRIC ULCER HAEMORRHAGE [None]
  - GESTATIONAL DIABETES [None]
  - HAEMATEMESIS [None]
  - HYPERTRIGLYCERIDAEMIA [None]
  - NAUSEA [None]
  - WEIGHT INCREASED [None]
